FAERS Safety Report 5410026-7 (Version None)
Quarter: 2007Q3

REPORT INFORMATION
  Report Type: 
  Country: None (occurrence: None)
  Receive Date: 20070809
  Receipt Date: 20070730
  Transmission Date: 20080115
  Serious: Yes (Other)
  Sender: FDA-Public Use
  Company Number: US-PFIZER INC-2007063967

PATIENT
  Sex: Female

DRUGS (7)
  1. NEURONTIN [Suspect]
     Indication: NERVE COMPRESSION
     Dates: start: 20060201, end: 20060101
  2. CHANTIX [Suspect]
     Indication: SMOKING CESSATION THERAPY
  3. CYMBALTA [Concomitant]
  4. VALSARTAN [Concomitant]
  5. LEVOTHYROXINE SODIUM [Concomitant]
  6. TRAZODONE HCL [Concomitant]
  7. GENERAL NUTRIENTS/MINERALS/VITAMINS [Concomitant]

REACTIONS (7)
  - DISTURBANCE IN ATTENTION [None]
  - EXPRESSIVE LANGUAGE DISORDER [None]
  - FATIGUE [None]
  - MEMORY IMPAIRMENT [None]
  - SLEEP DISORDER [None]
  - STRESS [None]
  - TREMOR [None]
